FAERS Safety Report 8257223-3 (Version None)
Quarter: 2012Q2

REPORT INFORMATION
  Report Type: 
  Country: None (occurrence: None)
  Receive Date: 20120403
  Receipt Date: 20120329
  Transmission Date: 20120825
  Serious: No
  Sender: FDA-Public Use
  Company Number: US-PFIZER INC-2012081176

PATIENT
  Sex: Male

DRUGS (2)
  1. LYRICA [Suspect]
     Indication: FIBROMYALGIA
     Dosage: 75 MG, 2X/DAY
     Route: 048
     Dates: start: 20120301
  2. LYRICA [Suspect]
     Indication: NEURALGIA

REACTIONS (5)
  - DISTURBANCE IN ATTENTION [None]
  - STOMATITIS [None]
  - DIZZINESS [None]
  - VISION BLURRED [None]
  - LIP BLISTER [None]
